FAERS Safety Report 6411049-1 (Version None)
Quarter: 2009Q4

REPORT INFORMATION
  Report Type: 
  Country: None (occurrence: None)
  Receive Date: 20091022
  Receipt Date: 20091014
  Transmission Date: 20100525
  Serious: Yes (Other)
  Sender: FDA-Public Use
  Company Number: BR-ABBOTT-09P-020-0600281-00

PATIENT
  Sex: Female
  Weight: 55 kg

DRUGS (3)
  1. HUMIRA [Suspect]
     Indication: RHEUMATOID ARTHRITIS
     Dosage: FORM STRENGTH 40 MG
     Route: 058
  2. ACTONEL [Concomitant]
     Indication: OSTEOPOROSIS
     Dosage: FORM STRENGTH 35 MG
     Route: 048
     Dates: start: 20060101
  3. CALCIUM [Concomitant]
     Indication: OSTEOPOROSIS
     Dosage: FORM STRENGTH 500 MG
     Route: 048
     Dates: start: 20060101

REACTIONS (1)
  - BONE EROSION [None]
